FAERS Safety Report 19567717 (Version 1)
Quarter: 2021Q3

REPORT INFORMATION
  Report Type: Report from Study
  Country: US (occurrence: US)
  Receive Date: 20210714
  Receipt Date: 20210714
  Transmission Date: 20211014
  Serious: No
  Sender: FDA-Public Use
  Company Number: NVSC2021US153290

PATIENT
  Age: 61 Year
  Sex: Male

DRUGS (2)
  1. ENTRESTO [Suspect]
     Active Substance: SACUBITRIL\VALSARTAN
     Indication: PRODUCT USED FOR UNKNOWN INDICATION
     Dosage: UNK UNK, BID
     Route: 065
     Dates: start: 202104
  2. CANNABIDIOL [Suspect]
     Active Substance: CANNABIDIOL
     Indication: BACK PAIN
     Route: 065

REACTIONS (2)
  - Product dose omission issue [Unknown]
  - Dizziness postural [Recovered/Resolved]
